FAERS Safety Report 25384424 (Version 2)
Quarter: 2025Q3

REPORT INFORMATION
  Report Type: Report from Study
  Country: US (occurrence: US)
  Receive Date: 20250602
  Receipt Date: 20250903
  Transmission Date: 20251021
  Serious: No
  Sender: AMGEN
  Company Number: US-AMGEN-USASP2025107632

PATIENT
  Age: 3 Year
  Sex: Male
  Weight: 15 kg

DRUGS (8)
  1. PROCYSBI [Suspect]
     Active Substance: CYSTEAMINE BITARTRATE
     Indication: Cystinosis
     Dosage: 75 MILLIGRAM, Q12H
     Route: 048
     Dates: start: 20250329
  2. PROCYSBI [Suspect]
     Active Substance: CYSTEAMINE BITARTRATE
     Dosage: 125 MILLIGRAM, BID (50 MG CAPSULES TO BE COMBINED WITH 75 MG PACKET 2 TIMES DALLY FOR A TOTAL OF 125
     Route: 048
     Dates: start: 2025
  3. FERROUS SULFATE [Concomitant]
     Active Substance: FERROUS SULFATE
     Dosage: 3 MILLILITER, QD
     Route: 048
  4. PERIACTIN [Concomitant]
     Active Substance: CYPROHEPTADINE HYDROCHLORIDE
     Route: 048
  5. CYSTADROPS [Concomitant]
     Active Substance: CYSTEAMINE HYDROCHLORIDE
     Dosage: 1 DROP, QID (LNSTI!L 1 DROP ONTO BOTH EYES 4TIMES DAILY)
  6. FAMOTIDINE [Concomitant]
     Active Substance: FAMOTIDINE
     Dosage: 1 MILLILITER, BID
     Route: 048
  7. NORDITROPIN [Concomitant]
     Active Substance: SOMATROPIN
     Dosage: 0.6 MILLIGRAM, QD
     Route: 058
  8. Cytra-3 [Concomitant]
     Dosage: 14 MILLILITER, QD
     Route: 048

REACTIONS (4)
  - Decreased appetite [Recovering/Resolving]
  - Nausea [Recovering/Resolving]
  - Viral rash [Unknown]
  - Amino acid level increased [Unknown]

NARRATIVE: CASE EVENT DATE: 20250101
